FAERS Safety Report 15111375 (Version 2)
Quarter: 2018Q3

REPORT INFORMATION
  Report Type: Spontaneous
  Country: US (occurrence: US)
  Receive Date: 20180705
  Receipt Date: 20180709
  Transmission Date: 20181010
  Serious: Yes (Other)
  Sender: FDA-Public Use
  Company Number: US-PFIZER INC-2018205604

PATIENT
  Sex: Male
  Weight: 74.83 kg

DRUGS (24)
  1. LEVOFLOXACIN. [Concomitant]
     Active Substance: LEVOFLOXACIN
     Dosage: 500 MG, QD
     Route: 048
  2. PREDNISONE. [Concomitant]
     Active Substance: PREDNISONE
     Dosage: 10 MG, QD
     Route: 048
  3. PLAQUENIL [Concomitant]
     Active Substance: HYDROXYCHLOROQUINE SULFATE
     Dosage: 200 MG, BID
  4. FENTANYL. [Concomitant]
     Active Substance: FENTANYL
     Dosage: 100 MU, UNK
  5. FLOMAX [Concomitant]
     Active Substance: TAMSULOSIN HYDROCHLORIDE
     Dosage: 0.4 MG, UNK
     Route: 048
  6. LOSARTAN POTASSIUM. [Concomitant]
     Active Substance: LOSARTAN POTASSIUM
     Dosage: 25 MG, QD
     Route: 048
  7. NYSTATIN. [Concomitant]
     Active Substance: NYSTATIN
     Dosage: 4.4, UNK
  8. HYDROXYCHLOROQUINE SULFATE. [Concomitant]
     Active Substance: HYDROXYCHLOROQUINE SULFATE
     Dosage: 200 MG, BID
     Route: 048
  9. XANAX [Concomitant]
     Active Substance: ALPRAZOLAM
     Dosage: 0.5 MG, QD
     Route: 048
  10. ASPIRIN. [Concomitant]
     Active Substance: ASPIRIN
     Dosage: 81 MG, QD
  11. KETOCONAZOLE. [Concomitant]
     Active Substance: KETOCONAZOLE
     Dosage: UNK
  12. POLY?IRON [Concomitant]
     Active Substance: IRON
     Dosage: 150 MG, UNK
  13. VITAMIN D [Concomitant]
     Active Substance: CHOLECALCIFEROL
     Dosage: 50000 UNIT, QWK
     Route: 048
  14. VITAMIN B COMPLEX [Concomitant]
     Active Substance: CYANOCOBALAMIN\DEXPANTHENOL\NIACINAMIDE\PYRIDOXINE HYDROCHLORIDE\RIBOFLAVIN 5^-PHOSPHATE SODIUM\THIAMINE HYDROCHLORIDE\VITAMIN B COMPLEX
     Dosage: UNK
  15. ENBREL [Suspect]
     Active Substance: ETANERCEPT
     Indication: RHEUMATOID ARTHRITIS
     Dosage: UNK
     Route: 058
     Dates: end: 2009
  16. LEFLUNOMIDE. [Suspect]
     Active Substance: LEFLUNOMIDE
     Dosage: 20 MG, QD
     Route: 065
     Dates: start: 201708, end: 201710
  17. DILAUDID [Concomitant]
     Active Substance: HYDROMORPHONE HYDROCHLORIDE
     Dosage: 4 MG, UNK
     Route: 048
  18. SULFASALAZINE. [Suspect]
     Active Substance: SULFASALAZINE
     Dosage: UNK
     Route: 065
  19. TEMAZEPAM. [Concomitant]
     Active Substance: TEMAZEPAM
     Dosage: 30 MG, AS NECESSARY AT BEDTIME
  20. XELJANZ XR [Concomitant]
     Active Substance: TOFACITINIB CITRATE
     Dosage: 11 MG, QD
     Route: 048
  21. NEUPOGEN [Suspect]
     Active Substance: FILGRASTIM
     Dosage: UNK
     Route: 065
  22. CARVEDILOL. [Concomitant]
     Active Substance: CARVEDILOL
     Dosage: 6.25 MG, BID
     Route: 048
  23. NITROSTAT [Concomitant]
     Active Substance: NITROGLYCERIN
     Indication: CHEST PAIN
     Dosage: 0.4 MG, AS NECESSARY
     Route: 060
  24. XARELTO [Concomitant]
     Active Substance: RIVAROXABAN
     Dosage: 20 MG, QD
     Route: 048

REACTIONS (53)
  - Supraventricular tachycardia [Unknown]
  - Benign prostatic hyperplasia [Unknown]
  - Skin ulcer [Unknown]
  - Acute kidney injury [Unknown]
  - Pulmonary embolism [Unknown]
  - Neutropenia [Unknown]
  - Rheumatoid arthritis [Not Recovered/Not Resolved]
  - Localised infection [Unknown]
  - Depression [Unknown]
  - Dry eye [Unknown]
  - Gastrooesophageal reflux disease [Unknown]
  - Peripheral vascular disorder [Unknown]
  - Insomnia [Unknown]
  - Hypoaesthesia [Unknown]
  - Mouth ulceration [Unknown]
  - Osteomyelitis [Unknown]
  - Dyspnoea [Unknown]
  - Hypotension [Unknown]
  - Balance disorder [Unknown]
  - Contusion [Unknown]
  - Paraesthesia [Unknown]
  - Atrial fibrillation [Unknown]
  - Abdominal pain [Unknown]
  - Adrenal insufficiency [Unknown]
  - Neuropathy peripheral [Unknown]
  - Osteonecrosis [Unknown]
  - Oedema [Unknown]
  - Folliculitis [Unknown]
  - Prostatic specific antigen increased [Unknown]
  - Carotid bruit [Unknown]
  - Cough [Unknown]
  - Bacterial infection [Unknown]
  - Impaired healing [Unknown]
  - Condition aggravated [Not Recovered/Not Resolved]
  - Anxiety [Unknown]
  - Ischaemic cardiomyopathy [Unknown]
  - Acute myocardial infarction [Unknown]
  - Coronary artery stenosis [Unknown]
  - Leukopenia [Unknown]
  - Gout [Unknown]
  - Arteriosclerosis coronary artery [Unknown]
  - Syncope [Unknown]
  - Hyperlipidaemia [Unknown]
  - Thyroid disorder [Unknown]
  - Cardiomyopathy [Unknown]
  - Septic shock [Unknown]
  - Thrombocytopenia [Unknown]
  - Hepatic enzyme increased [Unknown]
  - Fatigue [Unknown]
  - Sleep apnoea syndrome [Unknown]
  - Hypertension [Unknown]
  - Transaminases increased [Unknown]
  - Fungal infection [Unknown]
